FAERS Safety Report 15271918 (Version 1)
Quarter: 2018Q3

REPORT INFORMATION
  Report Type: Report from Study
  Country: JP (occurrence: JP)
  Receive Date: 20180813
  Receipt Date: 20180813
  Transmission Date: 20181010
  Serious: Yes (Other)
  Sender: FDA-Public Use
  Company Number: JP-BAYER-2018-151011

PATIENT
  Age: 47 Year
  Sex: Female

DRUGS (2)
  1. SALINE [Concomitant]
     Active Substance: SODIUM CHLORIDE
     Dosage: 30 ML, UNK
  2. GADOXETIC ACID [Suspect]
     Active Substance: GADOXETIC ACID
     Indication: NUCLEAR MAGNETIC RESONANCE IMAGING
     Dosage: 0.1ML/KG
     Route: 042

REACTIONS (1)
  - Imaging procedure artifact [None]
